FAERS Safety Report 19803151 (Version 1)
Quarter: 2021Q3

REPORT INFORMATION
  Report Type: Spontaneous
  Country: US (occurrence: US)
  Receive Date: 20210902
  Receipt Date: 20210902
  Transmission Date: 20211014
  Serious: No
  Sender: FDA-Public Use
  Company Number: None

PATIENT
  Age: 66 Year
  Sex: Female
  Weight: 63.5 kg

DRUGS (8)
  1. ESCITALOPRAM [Concomitant]
     Active Substance: ESCITALOPRAM OXALATE
  2. CLARITIN [Concomitant]
     Active Substance: LORATADINE
  3. ALENDRONATE SODIUM TABLETS USP 70MG ONCE WEEK [Suspect]
     Active Substance: ALENDRONATE SODIUM
     Indication: OSTEOPOROSIS
     Dosage: ?          QUANTITY:1 DF DOSAGE FORM;?
     Route: 048
     Dates: start: 20210719, end: 20210719
  4. VITAMIN E [Concomitant]
     Active Substance: .ALPHA.-TOCOPHEROL
  5. CALCIUM [Concomitant]
     Active Substance: CALCIUM
  6. ALEVE [Concomitant]
     Active Substance: NAPROXEN SODIUM
  7. VITAMIN D3 [Concomitant]
     Active Substance: CHOLECALCIFEROL
  8. COD LIVER OIL [Concomitant]
     Active Substance: COD LIVER OIL

REACTIONS (6)
  - Headache [None]
  - Mobility decreased [None]
  - Vomiting [None]
  - Near death experience [None]
  - Joint stiffness [None]
  - Back pain [None]

NARRATIVE: CASE EVENT DATE: 20210719
